FAERS Safety Report 9445331 (Version 1)
Quarter: 2013Q3

REPORT INFORMATION
  Report Type: Spontaneous
  Country: GB (occurrence: GB)
  Receive Date: 20130807
  Receipt Date: 20130807
  Transmission Date: 20140515
  Serious: Yes (Death)
  Sender: FDA-Public Use
  Company Number: GB-WATSON-2013-13794

PATIENT
  Sex: 0

DRUGS (1)
  1. CITALOPRAM HYDROBROMIDE (UNKNOWN) [Suspect]
     Indication: FOETAL EXPOSURE DURING PREGNANCY
     Dosage: UNK, UNKNOWN
     Route: 065

REACTIONS (2)
  - Heart disease congenital [Fatal]
  - Foetal exposure during pregnancy [Fatal]
